FAERS Safety Report 17019363 (Version 3)
Quarter: 2020Q3

REPORT INFORMATION
  Report Type: Report from Study
  Country: JP (occurrence: JP)
  Receive Date: 20191112
  Receipt Date: 20200921
  Transmission Date: 20201102
  Serious: Yes (Death, Hospitalization, Other)
  Sender: FDA-Public Use
  Company Number: JP-AMGEN-JPNCT2019186428

PATIENT
  Age: 90 Year
  Sex: Male

DRUGS (29)
  1. DARBEPOETIN ALFA [Suspect]
     Active Substance: DARBEPOETIN ALFA
     Dosage: 240 MICROGRAM, QWK
     Route: 058
     Dates: start: 20190425, end: 20190620
  2. MAGNESIUM OXIDE. [Concomitant]
     Active Substance: MAGNESIUM OXIDE
     Dosage: UNK
     Route: 048
  3. LEVOFLOXACIN HEMIHYDRATE [Concomitant]
     Active Substance: LEVOFLOXACIN
     Dosage: UNK
     Route: 048
     Dates: start: 20190112, end: 20190125
  4. CALONAL [Concomitant]
     Active Substance: ACETAMINOPHEN
     Dosage: UNK
     Route: 048
     Dates: start: 20190104
  5. BELSOMRA [Concomitant]
     Active Substance: SUVOREXANT
     Indication: INSOMNIA
     Dosage: UNK
     Route: 048
     Dates: start: 20190107
  6. POLYCARBOPHIL CALCIUM [Concomitant]
     Active Substance: CALCIUM POLYCARBOPHIL
     Indication: ENTEROCOLITIS
     Dosage: UNK
     Route: 048
     Dates: end: 20190106
  7. ETIZOLAM [Concomitant]
     Active Substance: ETIZOLAM
     Indication: INSOMNIA
     Dosage: UNK
     Route: 048
     Dates: end: 20190106
  8. ENTERONON?R [Concomitant]
     Active Substance: PROBIOTICS NOS
     Dosage: UNK
     Route: 048
     Dates: start: 20190130, end: 20190207
  9. MAGNESIUM OXIDE. [Concomitant]
     Active Substance: MAGNESIUM OXIDE
     Dosage: UNK
     Route: 048
  10. LANSOPRAZOLE. [Concomitant]
     Active Substance: LANSOPRAZOLE
     Dosage: UNK
     Route: 048
  11. LANSOPRAZOLE. [Concomitant]
     Active Substance: LANSOPRAZOLE
     Dosage: UNK
     Route: 048
  12. VESICARE [Concomitant]
     Active Substance: SOLIFENACIN SUCCINATE
     Dosage: UNK
     Route: 048
  13. BIO?THREE [Concomitant]
     Active Substance: HERBALS
     Indication: ENTEROCOLITIS
     Dosage: UNK
     Route: 048
     Dates: start: 20190322
  14. MAGNESIUM OXIDE. [Concomitant]
     Active Substance: MAGNESIUM OXIDE
     Indication: CONSTIPATION
     Dosage: UNK
     Route: 048
  15. LEVOFLOXACIN HEMIHYDRATE [Concomitant]
     Active Substance: LEVOFLOXACIN
     Dosage: UNK
     Route: 048
     Dates: start: 20180915, end: 20180922
  16. RISPERIDONE. [Concomitant]
     Active Substance: RISPERIDONE
     Indication: INSOMNIA
     Dosage: UNK UNK, PRN
     Route: 048
     Dates: start: 20190402
  17. DARBEPOETIN ALFA [Suspect]
     Active Substance: DARBEPOETIN ALFA
     Indication: MYELODYSPLASTIC SYNDROME
     Dosage: 240 MICROGRAM, QWK
     Route: 058
     Dates: start: 20180824, end: 20181227
  18. DARBEPOETIN ALFA [Suspect]
     Active Substance: DARBEPOETIN ALFA
     Dosage: 240 MICROGRAM, Q3WK
     Route: 058
     Dates: start: 20190329, end: 20190418
  19. ARASENA A [Concomitant]
     Active Substance: VIDARABINE
     Dosage: UNK
     Route: 061
     Dates: start: 20190320, end: 201904
  20. DARBEPOETIN ALFA [Suspect]
     Active Substance: DARBEPOETIN ALFA
     Dosage: 240 MICROGRAM, Q3WK
     Route: 058
     Dates: start: 20190124, end: 20190213
  21. VESICARE [Concomitant]
     Active Substance: SOLIFENACIN SUCCINATE
     Dosage: UNK
     Route: 048
  22. COLONEL [Concomitant]
     Active Substance: CALCIUM POLYCARBOPHIL
     Dosage: UNK
     Route: 048
     Dates: start: 20190107
  23. POVIDONE?IODINE. [Concomitant]
     Active Substance: POVIDONE-IODINE
     Dosage: UNK
     Route: 049
     Dates: start: 20190117, end: 201906
  24. DARBEPOETIN ALFA [Suspect]
     Active Substance: DARBEPOETIN ALFA
     Dosage: 240 MICROGRAM, QWK
     Route: 058
     Dates: start: 20190227, end: 20190306
  25. LANSOPRAZOLE. [Concomitant]
     Active Substance: LANSOPRAZOLE
     Dosage: UNK
     Route: 048
  26. VESICARE [Concomitant]
     Active Substance: SOLIFENACIN SUCCINATE
     Indication: NEUROGENIC BLADDER
     Dosage: UNK
     Route: 048
  27. BELSOMRA [Concomitant]
     Active Substance: SUVOREXANT
     Dosage: UNK UNK, PRN
     Route: 048
     Dates: start: 20190402
  28. PANTOSIN [Concomitant]
     Active Substance: PANTETHINE
     Indication: CONSTIPATION
     Dosage: UNK
     Route: 048
     Dates: start: 20190107
  29. ROZEREM [Concomitant]
     Active Substance: RAMELTEON
     Indication: INSOMNIA
     Dosage: UNK UNK, PRN
     Route: 048
     Dates: start: 20190402

REACTIONS (10)
  - Oral herpes [Recovered/Resolved]
  - Enteritis infectious [Recovered/Resolved]
  - Pyelonephritis acute [Recovered/Resolved]
  - Pyelonephritis acute [Recovered/Resolved]
  - Sepsis [Recovering/Resolving]
  - Enteritis infectious [Recovering/Resolving]
  - Sepsis [Recovered/Resolved]
  - Urinary tract infection [Recovered/Resolved]
  - Pneumonia [Fatal]
  - Pyrexia [Recovered/Resolved]

NARRATIVE: CASE EVENT DATE: 20180915
